FAERS Safety Report 19350085 (Version 2)
Quarter: 2021Q2

REPORT INFORMATION
  Report Type: Spontaneous
  Country: JP (occurrence: JP)
  Receive Date: 20210531
  Receipt Date: 20210610
  Transmission Date: 20210717
  Serious: Yes (Other)
  Sender: FDA-Public Use
  Company Number: JP-UCBSA-2021025682

PATIENT

DRUGS (2)
  1. VIMPAT [Suspect]
     Active Substance: LACOSAMIDE
     Indication: EPILEPSY
     Dosage: 175 MILLIGRAM, 2X/DAY (BID)
     Route: 064
  2. VIMPAT [Suspect]
     Active Substance: LACOSAMIDE
     Dosage: 175 MILLIGRAM, 2X/DAY (BID)
     Route: 063

REACTIONS (3)
  - Exposure via breast milk [Unknown]
  - Maternal exposure during pregnancy [Unknown]
  - Premature baby [Recovered/Resolved]
